FAERS Safety Report 6149625-6 (Version None)
Quarter: 2009Q2

REPORT INFORMATION
  Report Type: 
  Country: None (occurrence: None)
  Receive Date: 20090407
  Receipt Date: 20090327
  Transmission Date: 20091009
  Serious: Yes (Hospitalization)
  Sender: FDA-Public Use
  Company Number: TCI2009A01065

PATIENT
  Age: 62 Year
  Sex: Male

DRUGS (5)
  1. ACTOS [Suspect]
     Indication: TYPE 2 DIABETES MELLITUS
     Dosage: 30 MG (30 MG, 1 IN 1 D) PER ORAL
     Route: 048
     Dates: start: 20090306, end: 20090319
  2. METFORMIN HYDROCHLORIDE [Concomitant]
  3. PERSANTIN [Concomitant]
  4. AMARYL [Concomitant]
  5. MICARDIS [Concomitant]

REACTIONS (2)
  - ASTHENIA [None]
  - VERTIGO [None]
